FAERS Safety Report 8193993-0 (Version None)
Quarter: 2012Q1

REPORT INFORMATION
  Report Type: 
  Country: None (occurrence: None)
  Receive Date: 20120308
  Receipt Date: 20120227
  Transmission Date: 20120608
  Serious: No
  Sender: FDA-Public Use
  Company Number: US-BAYER-2012-020070

PATIENT
  Age: 3 Year
  Sex: Female
  Weight: 12 kg

DRUGS (2)
  1. RID 1-2-3 SYSTEM [Suspect]
     Indication: LICE INFESTATION
     Dosage: 1 U, UNK
     Route: 061
     Dates: start: 20120101, end: 20120225
  2. RID MOUSSE [Suspect]
     Indication: LICE INFESTATION
     Dosage: 1 U, UNK
     Route: 061
     Dates: start: 20120101, end: 20120225

REACTIONS (3)
  - NO ADVERSE EVENT [None]
  - LICE INFESTATION [None]
  - ERYTHEMA [None]
